FAERS Safety Report 10128094 (Version 7)
Quarter: 2018Q3

REPORT INFORMATION
  Report Type: Report from Study
  Country: CA (occurrence: CA)
  Receive Date: 20140428
  Receipt Date: 20180716
  Transmission Date: 20181010
  Serious: Yes (Hospitalization, Other)
  Sender: FDA-Public Use
  Company Number: CA-ROCHE-1390739

PATIENT
  Sex: Female
  Weight: 65.83 kg

DRUGS (21)
  1. PLAQUENIL [Concomitant]
     Active Substance: HYDROXYCHLOROQUINE SULFATE
  2. AMIODARONE [Concomitant]
     Active Substance: AMIODARONE
  3. LEFLUNOMIDE. [Concomitant]
     Active Substance: LEFLUNOMIDE
  4. AMITRIPTYLINE [Concomitant]
     Active Substance: AMITRIPTYLINE
  5. HYDROCHLOROTHIAZIDE. [Concomitant]
     Active Substance: HYDROCHLOROTHIAZIDE
  6. RITUXAN [Suspect]
     Active Substance: RITUXIMAB
     Indication: RHEUMATOID ARTHRITIS
     Dosage: FREQUENCY: DAY 1, 15,?DATE OF LAST DOSE PRIOR TO EVENT : 23/OCT/2013?LAST DOSE: 29/JUL/2015 AND 12/F
     Route: 042
     Dates: start: 20130325
  7. NOVAMILOR [Concomitant]
  8. PENNSAID [Concomitant]
     Active Substance: DICLOFENAC SODIUM
  9. DOXYCYCLINE. [Suspect]
     Active Substance: DOXYCYCLINE
     Indication: PRODUCT USED FOR UNKNOWN INDICATION
     Route: 065
  10. ACETAMINOPHEN. [Concomitant]
     Active Substance: ACETAMINOPHEN
     Indication: PREMEDICATION
     Route: 048
  11. METHYLPREDNISOLONE. [Concomitant]
     Active Substance: METHYLPREDNISOLONE
     Indication: PREMEDICATION
     Route: 042
  12. TYLENOL WITH CODEINE [Concomitant]
     Active Substance: ACETAMINOPHEN\CODEINE PHOSPHATE
  13. PROMETRIUM [Concomitant]
     Active Substance: PROGESTERONE
  14. WARFARIN [Concomitant]
     Active Substance: WARFARIN
  15. METOPROLOL. [Concomitant]
     Active Substance: METOPROLOL
  16. DIPHENHYDRAMINE HCL [Concomitant]
     Active Substance: DIPHENHYDRAMINE HYDROCHLORIDE
     Indication: PREMEDICATION
     Route: 048
  17. AVAMYS [Concomitant]
     Active Substance: FLUTICASONE FUROATE
     Route: 065
  18. MIDAMOR [Concomitant]
     Active Substance: AMILORIDE HYDROCHLORIDE
  19. OMEGA 3 [Concomitant]
     Active Substance: OMEGA-3 FATTY ACIDS
  20. GABAPENTIN. [Concomitant]
     Active Substance: GABAPENTIN
  21. SYNTHROID [Concomitant]
     Active Substance: LEVOTHYROXINE SODIUM

REACTIONS (5)
  - Spinal column stenosis [Unknown]
  - Drug hypersensitivity [Unknown]
  - Colitis [Unknown]
  - Gastrointestinal disorder [Unknown]
  - Weight increased [Unknown]

NARRATIVE: CASE EVENT DATE: 2014
